FAERS Safety Report 4571457-0 (Version None)
Quarter: 2005Q1

REPORT INFORMATION
  Report Type: 
  Country: None (occurrence: None)
  Receive Date: 20050207
  Receipt Date: 20050126
  Transmission Date: 20050727
  Serious: Yes (Other)
  Sender: FDA-Public Use
  Company Number: CA-JNJFOC-20041203813

PATIENT
  Age: 61 Year
  Sex: Female

DRUGS (42)
  1. REMICADE [Suspect]
     Route: 042
  2. REMICADE [Suspect]
     Route: 042
  3. REMICADE [Suspect]
     Route: 042
  4. REMICADE [Suspect]
     Route: 042
  5. REMICADE [Suspect]
     Route: 042
  6. REMICADE [Suspect]
     Route: 042
  7. REMICADE [Suspect]
     Route: 042
  8. REMICADE [Suspect]
     Route: 042
  9. REMICADE [Suspect]
     Route: 042
  10. REMICADE [Suspect]
     Route: 042
  11. REMICADE [Suspect]
     Route: 042
  12. REMICADE [Suspect]
     Route: 042
  13. REMICADE [Suspect]
     Route: 042
  14. REMICADE [Suspect]
     Route: 042
  15. REMICADE [Suspect]
     Route: 042
  16. REMICADE [Suspect]
     Route: 042
  17. REMICADE [Suspect]
     Indication: CROHN'S DISEASE
     Route: 042
  18. PENTASA [Concomitant]
     Indication: CROHN'S DISEASE
  19. ACETAMINOPHEN [Concomitant]
     Indication: PAIN
  20. MULTI-VITAMINS [Concomitant]
  21. MULTI-VITAMINS [Concomitant]
  22. MULTI-VITAMINS [Concomitant]
  23. MULTI-VITAMINS [Concomitant]
  24. MULTI-VITAMINS [Concomitant]
  25. MULTI-VITAMINS [Concomitant]
  26. MULTI-VITAMINS [Concomitant]
  27. MULTI-VITAMINS [Concomitant]
  28. CODEINE PHOSPHATE [Concomitant]
  29. OPHTHO-BUNOLOL [Concomitant]
     Indication: GLAUCOMA
  30. FLURAZEPAM [Concomitant]
     Indication: INSOMNIA
  31. FUROSEMIDE [Concomitant]
  32. NORVASC [Concomitant]
     Indication: HYPERTENSION
  33. PANTOPRAZOLE SODIUM [Concomitant]
     Indication: CROHN'S DISEASE
  34. VITAMIN D [Concomitant]
     Indication: CROHN'S DISEASE
  35. VITAMIN B-12 [Concomitant]
  36. COVERSYL [Concomitant]
     Indication: HYPERTENSION
  37. ALPHAGAN [Concomitant]
  38. ALPHAGAN [Concomitant]
     Indication: GLAUCOMA
  39. TUMS [Concomitant]
     Indication: BONE DENSITOMETRY
  40. GRAVOL TAB [Concomitant]
     Indication: NAUSEA
  41. COSOPT [Concomitant]
  42. COSOPT [Concomitant]
     Indication: GLAUCOMA

REACTIONS (1)
  - GLAUCOMA [None]
